FAERS Safety Report 21328552 (Version 1)
Quarter: 2022Q3

REPORT INFORMATION
  Report Type: Spontaneous
  Country: US (occurrence: US)
  Receive Date: 20220913
  Receipt Date: 20220913
  Transmission Date: 20221026
  Serious: No
  Sender: FDA-Public Use
  Company Number: US-BAYER-2022A118725

PATIENT
  Age: 69 Year
  Sex: Female

DRUGS (5)
  1. ADEMPAS [Suspect]
     Active Substance: RIOCIGUAT
     Indication: Pulmonary arterial hypertension
     Dosage: 2.5 MG, TID
     Dates: start: 20191119
  2. AMBRISENTAN [Suspect]
     Active Substance: AMBRISENTAN
     Indication: Pulmonary arterial hypertension
     Dosage: 10 MG, QD
     Dates: start: 20171103
  3. TYLENOL [Concomitant]
     Active Substance: ACETAMINOPHEN
  4. ZOFRAN [Concomitant]
     Active Substance: ONDANSETRON HYDROCHLORIDE
  5. UPTRAVI [Concomitant]
     Active Substance: SELEXIPAG
     Dosage: 1600 ?G, BID
     Dates: start: 20210801

REACTIONS (4)
  - Nausea [None]
  - Pain in jaw [None]
  - Muscle spasms [None]
  - Decreased appetite [None]
